FAERS Safety Report 5603387-7 (Version None)
Quarter: 2008Q1

REPORT INFORMATION
  Report Type: 
  Country: None (occurrence: None)
  Receive Date: 20080123
  Receipt Date: 20080107
  Transmission Date: 20080703
  Serious: Yes (Hospitalization)
  Sender: FDA-Public Use
  Company Number: 8028297

PATIENT
  Age: 73 Year
  Sex: Female
  Weight: 63 kg

DRUGS (7)
  1. KEPPRA [Suspect]
     Indication: EPILEPSY
     Dosage: 500 MG 2/D PO
     Route: 048
     Dates: start: 20070920, end: 20071101
  2. KEPPRA [Suspect]
     Indication: PARTIAL SEIZURES
     Dosage: 500 MG 2/D PO
     Route: 048
     Dates: start: 20070920, end: 20071101
  3. KEPPRA [Suspect]
     Indication: EPILEPSY
     Dosage: 250 MG 2/D PO
     Route: 048
     Dates: start: 20071101
  4. KEPPRA [Suspect]
     Indication: PARTIAL SEIZURES
     Dosage: 250 MG 2/D PO
     Route: 048
     Dates: start: 20071101
  5. TAHOR [Concomitant]
  6. KARDEGIC [Concomitant]
  7. ZANIDIP [Concomitant]

REACTIONS (2)
  - ATRIOVENTRICULAR BLOCK FIRST DEGREE [None]
  - VAGUS NERVE DISORDER [None]
